FAERS Safety Report 24778038 (Version 1)
Quarter: 2024Q4

REPORT INFORMATION
  Report Type: Spontaneous
  Country: DE (occurrence: DE)
  Receive Date: 20241226
  Receipt Date: 20241226
  Transmission Date: 20250115
  Serious: Yes (Hospitalization, Other)
  Sender: FRESENIUS KABI
  Company Number: None

PATIENT
  Age: 30 Year
  Sex: Female
  Weight: 100 kg

DRUGS (2)
  1. LEVOFLOXACIN [Suspect]
     Active Substance: LEVOFLOXACIN
     Indication: Bronchitis
     Dosage: UNKNOWN?FOA: INFUSION
     Route: 042
     Dates: end: 20240113
  2. PREDNISOLONE [Suspect]
     Active Substance: PREDNISOLONE
     Indication: Bronchitis
     Dosage: UNKNOWN?FOA: INFUSION
     Route: 042

REACTIONS (28)
  - Pain in extremity [Unknown]
  - Dizziness [Unknown]
  - Gait disturbance [Unknown]
  - Cluster headache [Unknown]
  - Facial paresis [Unknown]
  - Monoparesis [Unknown]
  - Memory impairment [Unknown]
  - Dry skin [Unknown]
  - Sensitive skin [Unknown]
  - Erythema [Unknown]
  - Neuralgia [Not Recovered/Not Resolved]
  - Poor peripheral circulation [Not Recovered/Not Resolved]
  - Fatigue [Not Recovered/Not Resolved]
  - Disturbance in attention [Not Recovered/Not Resolved]
  - Visual impairment [Not Recovered/Not Resolved]
  - Sudden hearing loss [Not Recovered/Not Resolved]
  - Abdominal discomfort [Not Recovered/Not Resolved]
  - Hypoaesthesia [Not Recovered/Not Resolved]
  - Paraesthesia [Not Recovered/Not Resolved]
  - Myositis [Not Recovered/Not Resolved]
  - Tendonitis [Not Recovered/Not Resolved]
  - Myalgia [Not Recovered/Not Resolved]
  - Tendon pain [Not Recovered/Not Resolved]
  - Loss of personal independence in daily activities [Not Recovered/Not Resolved]
  - Sick leave [Not Recovered/Not Resolved]
  - Infusion site rash [Unknown]
  - Infusion site pain [Unknown]
  - Venous occlusion [Unknown]

NARRATIVE: CASE EVENT DATE: 20240101
